FAERS Safety Report 18413667 (Version 1)
Quarter: 2020Q4

REPORT INFORMATION
  Report Type: Other
  Country: CA (occurrence: CA)
  Receive Date: 20201021
  Receipt Date: 20201021
  Transmission Date: 20210114
  Serious: Yes (Other)
  Sender: FDA-Public Use
  Company Number: CA-CELLTRION INC.-2020CA028997

PATIENT

DRUGS (8)
  1. PREDNISONE. [Concomitant]
     Active Substance: PREDNISONE
  2. ENBREL [Suspect]
     Active Substance: ETANERCEPT
     Indication: RHEUMATOID ARTHRITIS
     Dosage: 50.0 MILLIGRAM, 1 EVERY 1 WEEK
     Route: 065
  3. RITUXIMAB (UNKNOWN) [Suspect]
     Active Substance: RITUXIMAB
     Indication: PRODUCT USED FOR UNKNOWN INDICATION
     Route: 042
  4. HUMIRA [Suspect]
     Active Substance: ADALIMUMAB
     Indication: RHEUMATOID ARTHRITIS
     Route: 058
  5. XELJANZ [Concomitant]
     Active Substance: TOFACITINIB CITRATE
  6. ARAVA [Concomitant]
     Active Substance: LEFLUNOMIDE
  7. ACTEMRA [Suspect]
     Active Substance: TOCILIZUMAB
     Indication: PRODUCT USED FOR UNKNOWN INDICATION
     Route: 065
  8. HYDROCHLOROTHIAZIDE. [Suspect]
     Active Substance: HYDROCHLOROTHIAZIDE
     Indication: PRODUCT USED FOR UNKNOWN INDICATION
     Route: 065

REACTIONS (17)
  - Dysphagia [Unknown]
  - Injection site erythema [Unknown]
  - Injection site reaction [Unknown]
  - Skin haemorrhage [Unknown]
  - Pain [Unknown]
  - Dermatitis allergic [Unknown]
  - Injection site discolouration [Unknown]
  - Injection site bruising [Unknown]
  - Osteoarthritis [Unknown]
  - Pruritus allergic [Unknown]
  - Drug ineffective [Unknown]
  - Contusion [Unknown]
  - Allergic oedema [Unknown]
  - Pathological fracture [Unknown]
  - Drug hypersensitivity [Unknown]
  - Hypertension [Unknown]
  - Injection site hypersensitivity [Unknown]
